FAERS Safety Report 7323696-3 (Version None)
Quarter: 2011Q1

REPORT INFORMATION
  Report Type: 
  Country: None (occurrence: None)
  Receive Date: 20110301
  Receipt Date: 20100510
  Transmission Date: 20110831
  Serious: No
  Sender: FDA-Public Use
  Company Number: US-BAYER-200940151NA

PATIENT
  Sex: Female
  Weight: 82 kg

DRUGS (9)
  1. LEXAPRO [Concomitant]
     Route: 065
     Dates: start: 20030101
  2. YASMIN [Suspect]
     Indication: CONTRACEPTION
  3. AMOXICILLIN [Concomitant]
     Route: 065
     Dates: start: 20030101
  4. SARAFEM [Concomitant]
  5. YASMIN [Suspect]
     Indication: PREMENSTRUAL SYNDROME
     Route: 048
     Dates: start: 20030101, end: 20061101
  6. LEVAQUIN [Concomitant]
     Route: 065
     Dates: start: 20030101
  7. MACROBID [Concomitant]
     Route: 065
     Dates: start: 20030101
  8. ANTIINFLAMMATORY AGENTS [Concomitant]
     Route: 065
     Dates: start: 20030101
  9. NSAID'S [Concomitant]
     Route: 065
     Dates: start: 20030101

REACTIONS (3)
  - VASODILATATION [None]
  - OEDEMA PERIPHERAL [None]
  - THROMBOPHLEBITIS SUPERFICIAL [None]
